FAERS Safety Report 8484449-6 (Version None)
Quarter: 2012Q3

REPORT INFORMATION
  Report Type: 
  Country: None (occurrence: None)
  Receive Date: 20120703
  Receipt Date: 20120626
  Transmission Date: 20120928
  Serious: Yes (Hospitalization)
  Sender: FDA-Public Use
  Company Number: US-ACTELION-A-NJ2012-59231

PATIENT

DRUGS (6)
  1. ASPIRIN [Concomitant]
  2. ASPIRIN [Concomitant]
  3. TRACLEER [Suspect]
     Indication: PULMONARY ARTERIAL HYPERTENSION
     Dosage: UNK
     Route: 048
     Dates: start: 20110727
  4. TYVASO [Concomitant]
  5. ADCIRCA [Concomitant]
  6. PLAVIX [Concomitant]

REACTIONS (10)
  - CHEST PAIN [None]
  - INCREASED UPPER AIRWAY SECRETION [None]
  - DYSPHAGIA [None]
  - PHARYNGEAL ULCERATION [None]
  - COUGH [None]
  - NASOPHARYNGITIS [None]
  - FEELING ABNORMAL [None]
  - OROPHARYNGEAL PAIN [None]
  - THROAT IRRITATION [None]
  - RESPIRATORY TRACT INFECTION [None]
